FAERS Safety Report 9975938 (Version 2)
Quarter: 2014Q2

REPORT INFORMATION
  Report Type: Report from Study
  Country: TW (occurrence: TW)
  Receive Date: 20140306
  Receipt Date: 20140409
  Transmission Date: 20141212
  Serious: Yes (Hospitalization)
  Sender: FDA-Public Use
  Company Number: TW-ABBVIE-14P-153-1208824-00

PATIENT
  Age: 42 Year
  Sex: Female
  Weight: 44.3 kg

DRUGS (4)
  1. HUMIRA [Suspect]
     Indication: CROHN^S DISEASE
     Route: 058
     Dates: start: 20110706, end: 20140122
  2. HUMIRA [Suspect]
     Dates: start: 20140305
  3. MORPHINE [Concomitant]
     Indication: PRODUCT USED FOR UNKNOWN INDICATION
     Route: 048
     Dates: start: 20130501
  4. AUGMENTIN [Concomitant]
     Indication: PRODUCT USED FOR UNKNOWN INDICATION
     Route: 048
     Dates: start: 20130122

REACTIONS (2)
  - Intestinal obstruction [Recovered/Resolved]
  - Pyrexia [Recovered/Resolved]
